FAERS Safety Report 18420442 (Version 2)
Quarter: 2020Q4

REPORT INFORMATION
  Report Type: Report from Study
  Country: CA (occurrence: CA)
  Receive Date: 20201023
  Receipt Date: 20201125
  Transmission Date: 20210114
  Serious: Yes (Other)
  Sender: FDA-Public Use
  Company Number: CA-BAUSCH-BL-2020-030743

PATIENT
  Age: 45 Year
  Sex: Female

DRUGS (3)
  1. SILIQ [Suspect]
     Active Substance: BRODALUMAB
     Dosage: STRENGTH: 210 MG/ 1.5 ML, WEEKS AT 0, 1, AND 2 WEEKS FOLLOWED BY EVERY 2 WEEKS
     Route: 058
     Dates: start: 202010
  2. PANTOPRAZOLE [Concomitant]
     Active Substance: PANTOPRAZOLE
     Indication: PRODUCT USED FOR UNKNOWN INDICATION
  3. SILIQ [Suspect]
     Active Substance: BRODALUMAB
     Indication: PSORIASIS
     Dosage: STRENGTH: 210 MG/ 1.5 ML, WEEKS AT 0, 1, AND 2 WEEKS FOLLOWED BY EVERY 2 WEEKS
     Route: 058
     Dates: start: 20201009, end: 202010

REACTIONS (1)
  - White coat hypertension [Recovering/Resolving]

NARRATIVE: CASE EVENT DATE: 20201016
